FAERS Safety Report 12476063 (Version 5)
Quarter: 2020Q3

REPORT INFORMATION
  Report Type: Spontaneous
  Country: ES (occurrence: ES)
  Receive Date: 20160617
  Receipt Date: 20200925
  Transmission Date: 20201102
  Serious: Yes (Hospitalization, Disabling, Congenital Anomaly, Other)
  Sender: FDA-Public Use
  Company Number: ES-ABBVIE-16P-144-1654590-00

PATIENT
  Age: 0 Year
  Sex: Male

DRUGS (1)
  1. DEPAKINE CHRONO [Suspect]
     Active Substance: VALPROATE SODIUM
     Indication: MATERNAL EXPOSURE TIMING UNSPECIFIED
     Route: 064

REACTIONS (66)
  - Skull malformation [Not Recovered/Not Resolved]
  - Bradycardia [Not Recovered/Not Resolved]
  - Pachygyria [Not Recovered/Not Resolved]
  - Respiration abnormal [Unknown]
  - Dependence [Not Recovered/Not Resolved]
  - Gene mutation [Not Recovered/Not Resolved]
  - Mental disability [Unknown]
  - Atrial septal defect [Not Recovered/Not Resolved]
  - Congenital anomaly [Not Recovered/Not Resolved]
  - Frenulum breve [Not Recovered/Not Resolved]
  - Clinodactyly [Not Recovered/Not Resolved]
  - Generalised tonic-clonic seizure [Not Recovered/Not Resolved]
  - Cerebrospinal fluid circulation disorder [Not Recovered/Not Resolved]
  - Autism spectrum disorder [Unknown]
  - Cognitive disorder [Not Recovered/Not Resolved]
  - Trigger finger [Not Recovered/Not Resolved]
  - Cognitive disorder [Unknown]
  - General physical condition abnormal [Unknown]
  - Anger [Unknown]
  - Ventricular septal defect [Recovered/Resolved]
  - Lip disorder [Not Recovered/Not Resolved]
  - Respiratory acidosis [Not Recovered/Not Resolved]
  - Bone loss [Not Recovered/Not Resolved]
  - Syringomyelia [Not Recovered/Not Resolved]
  - Inguinal hernia [Recovered/Resolved]
  - Craniosynostosis [Not Recovered/Not Resolved]
  - Craniosynostosis [Unknown]
  - Foetal exposure during pregnancy [Unknown]
  - Fine motor skill dysfunction [Unknown]
  - Craniofacial deformity [Not Recovered/Not Resolved]
  - Nose deformity [Not Recovered/Not Resolved]
  - Dysmorphism [Not Recovered/Not Resolved]
  - Haematoma [Not Recovered/Not Resolved]
  - Personality disorder [Not Recovered/Not Resolved]
  - Myopia [Not Recovered/Not Resolved]
  - Disability [Not Recovered/Not Resolved]
  - Brain herniation [Not Recovered/Not Resolved]
  - Brain malformation [Not Recovered/Not Resolved]
  - Unevaluable event [Unknown]
  - Oppositional defiant disorder [Unknown]
  - Hypertelorism of orbit [Not Recovered/Not Resolved]
  - High arched palate [Not Recovered/Not Resolved]
  - Lissencephaly [Not Recovered/Not Resolved]
  - Skull malformation [Not Recovered/Not Resolved]
  - Malocclusion [Not Recovered/Not Resolved]
  - Foetal anticonvulsant syndrome [Not Recovered/Not Resolved]
  - Scoliosis [Unknown]
  - Sleep apnoea syndrome [Unknown]
  - Behaviour disorder [Unknown]
  - Pulmonary hypertension [Not Recovered/Not Resolved]
  - Arteriovenous fistula [Not Recovered/Not Resolved]
  - Blepharophimosis [Not Recovered/Not Resolved]
  - External ear disorder [Not Recovered/Not Resolved]
  - Cryptorchism [Not Recovered/Not Resolved]
  - Decreased activity [Not Recovered/Not Resolved]
  - Benign neoplasm [Not Recovered/Not Resolved]
  - Heart disease congenital [Unknown]
  - Cardiac murmur [Not Recovered/Not Resolved]
  - Microphthalmos [Not Recovered/Not Resolved]
  - Hypotonia [Not Recovered/Not Resolved]
  - Astigmatism [Not Recovered/Not Resolved]
  - Hyporeflexia [Not Recovered/Not Resolved]
  - Premature baby [Not Recovered/Not Resolved]
  - Premature baby [Unknown]
  - Obsessive-compulsive disorder [Unknown]
  - Impaired self-care [Unknown]

NARRATIVE: CASE EVENT DATE: 20040809
